FAERS Safety Report 9557372 (Version 1)
Quarter: 2013Q3

REPORT INFORMATION
  Report Type: Spontaneous
  Country: US (occurrence: US)
  Receive Date: 20130926
  Receipt Date: 20130926
  Transmission Date: 20140515
  Serious: Yes (Other)
  Sender: FDA-Public Use
  Company Number: US-PFIZER INC-2013275958

PATIENT
  Sex: Female

DRUGS (4)
  1. NEURONTIN [Suspect]
     Dosage: UNK
  2. ALDACTONE [Suspect]
     Dosage: UNK
  3. CELEBREX [Suspect]
     Dosage: UNK
  4. ACCUPRIL [Suspect]
     Dosage: UNK

REACTIONS (5)
  - Intentional drug misuse [Unknown]
  - Systemic lupus erythematosus [Unknown]
  - Type 1 diabetes mellitus [Unknown]
  - Pain [Unknown]
  - Pain in extremity [Unknown]
